FAERS Safety Report 23743422 (Version 1)
Quarter: 2024Q2

REPORT INFORMATION
  Report Type: Spontaneous
  Country: US (occurrence: US)
  Receive Date: 20240415
  Receipt Date: 20240415
  Transmission Date: 20240715
  Serious: Yes (Other)
  Sender: FDA-Public Use
  Company Number: US-The Proactiv LLC-2155583

PATIENT
  Sex: Male

DRUGS (3)
  1. COSMETICS [Suspect]
     Active Substance: COSMETICS
     Route: 061
     Dates: start: 20220602
  2. COSMETICS [Suspect]
     Active Substance: COSMETICS
     Route: 061
     Dates: start: 20220602
  3. PROACTIV MD ADAPALENE ACNE TREATMENT [Concomitant]
     Active Substance: ADAPALENE
     Route: 061
     Dates: start: 20220602

REACTIONS (2)
  - Drug ineffective [Unknown]
  - Skin cancer [Unknown]
